FAERS Safety Report 18118820 (Version 2)
Quarter: 2020Q3

REPORT INFORMATION
  Report Type: Spontaneous
  Country: US (occurrence: US)
  Receive Date: 20200806
  Receipt Date: 20200810
  Transmission Date: 20201103
  Serious: No
  Sender: FDA-Public Use
  Company Number: US-GLAXOSMITHKLINE-US2020AMR148619

PATIENT
  Sex: Female

DRUGS (1)
  1. ZEJULA [Suspect]
     Active Substance: NIRAPARIB
     Indication: OVARIAN CANCER
     Dosage: 200 MG, QD
     Route: 048
     Dates: start: 20200721

REACTIONS (6)
  - Throat irritation [Unknown]
  - Constipation [Unknown]
  - Rash vesicular [Unknown]
  - Headache [Unknown]
  - Blood pressure increased [Recovering/Resolving]
  - Oropharyngeal pain [Unknown]
